FAERS Safety Report 16823463 (Version 2)
Quarter: 2019Q4

REPORT INFORMATION
  Report Type: Spontaneous
  Country: US (occurrence: US)
  Receive Date: 20190918
  Receipt Date: 20191011
  Transmission Date: 20200122
  Serious: Yes (Other)
  Sender: FDA-Public Use
  Company Number: US-ENDO PHARMACEUTICALS INC-2019-108014

PATIENT
  Age: 65 Year
  Sex: Male

DRUGS (4)
  1. XIAFLEX [Suspect]
     Active Substance: COLLAGENASE CLOSTRIDIUM HISTOLYTICUM
     Dosage: 0.25 ML, UNKNOWN (CYCLE 3, INJECTION 1)
     Route: 026
     Dates: start: 2019
  2. XIAFLEX [Suspect]
     Active Substance: COLLAGENASE CLOSTRIDIUM HISTOLYTICUM
     Dosage: 0.25 ML, UNKNOWN (CYCLE 2)
     Route: 026
     Dates: start: 2019
  3. XIAFLEX [Suspect]
     Active Substance: COLLAGENASE CLOSTRIDIUM HISTOLYTICUM
     Dosage: 0.25 ML, UNKNOWN (CYCLE 1)
     Route: 026
     Dates: start: 2019
  4. XIAFLEX [Suspect]
     Active Substance: COLLAGENASE CLOSTRIDIUM HISTOLYTICUM
     Indication: PEYRONIE^S DISEASE
     Dosage: 0.25 ML, UNKNOWN (CYCLE 3, INJECTION 2)
     Route: 026
     Dates: start: 20190422

REACTIONS (2)
  - Corpora cavernosa surgery [Recovered/Resolved]
  - Fracture of penis [Recovered/Resolved]

NARRATIVE: CASE EVENT DATE: 20190425
